FAERS Safety Report 4300845-2 (Version None)
Quarter: 2004Q1

REPORT INFORMATION
  Report Type: 
  Country: None (occurrence: None)
  Receive Date: 20040218
  Receipt Date: 20040210
  Transmission Date: 20041129
  Serious: Yes (Death)
  Sender: FDA-Public Use
  Company Number: 163-20785-04010084

PATIENT
  Age: 75 Year
  Sex: Female

DRUGS (1)
  1. THALOMID [Suspect]
     Indication: MULTIPLE MYELOMA
     Dosage: 600 MG, DAILY, ORAL
     Route: 048
     Dates: start: 20030801, end: 20031201

REACTIONS (2)
  - COLITIS ISCHAEMIC [None]
  - SEPSIS [None]
